FAERS Safety Report 13817651 (Version 1)
Quarter: 2017Q3

REPORT INFORMATION
  Report Type: Spontaneous
  Country: US (occurrence: US)
  Receive Date: 20170731
  Receipt Date: 20170731
  Transmission Date: 20171127
  Serious: Yes (Other)
  Sender: FDA-Public Use
  Company Number: US-TEVA-792654USA

PATIENT
  Age: 79 Year
  Sex: Female

DRUGS (3)
  1. QVAR [Suspect]
     Active Substance: BECLOMETHASONE DIPROPIONATE
     Indication: DYSPNOEA
     Dosage: 40 MICROGRAM DAILY; 4 PUFFS
     Dates: start: 201706
  2. VENTOLIN [Concomitant]
     Active Substance: ALBUTEROL SULFATE
  3. PROAIR HFA [Suspect]
     Active Substance: ALBUTEROL SULFATE
     Route: 065

REACTIONS (10)
  - Intraocular pressure increased [Not Recovered/Not Resolved]
  - Throat tightness [Unknown]
  - Choking [Unknown]
  - Dry mouth [Unknown]
  - Feeling hot [Not Recovered/Not Resolved]
  - Pharyngeal oedema [Unknown]
  - Dysphonia [Unknown]
  - Dysgeusia [Unknown]
  - Burning sensation [Not Recovered/Not Resolved]
  - Aphonia [Unknown]

NARRATIVE: CASE EVENT DATE: 20170619
